FAERS Safety Report 4741551-X (Version None)
Quarter: 2005Q3

REPORT INFORMATION
  Report Type: 
  Country: None (occurrence: None)
  Receive Date: 20050808
  Receipt Date: 20050725
  Transmission Date: 20060218
  Serious: Yes (Hospitalization)
  Sender: FDA-Public Use
  Company Number: OMPQ-NO-0507S-1108

PATIENT
  Age: 39 Year
  Sex: Female

DRUGS (1)
  1. OMNIPAQUE 300 [Suspect]
     Indication: PANCREATITIS ACUTE
     Dosage: 90 ML, SINGLE DOSE, I.V.
     Route: 042
     Dates: start: 20050712, end: 20050712

REACTIONS (7)
  - ABDOMINAL PAIN LOWER [None]
  - CONTRAST MEDIA REACTION [None]
  - COUGH [None]
  - ERYTHEMA [None]
  - HYPOAESTHESIA [None]
  - PHARYNX DISCOMFORT [None]
  - SNEEZING [None]
